FAERS Safety Report 12191194 (Version 1)
Quarter: 2016Q1

REPORT INFORMATION
  Report Type: Spontaneous
  Country: US (occurrence: None)
  Receive Date: 20160317
  Receipt Date: 20160317
  Transmission Date: 20160526
  Serious: No
  Sender: FDA-Public Use
  Company Number: None

PATIENT
  Age: 80 Year
  Sex: Female

DRUGS (7)
  1. VITAMIN D3 [Concomitant]
     Active Substance: CHOLECALCIFEROL
  2. ENBREL [Suspect]
     Active Substance: ETANERCEPT
     Indication: PSORIASIS
     Route: 058
     Dates: start: 20150224
  3. LISINORPIL [Concomitant]
  4. OCUVITE [Concomitant]
     Active Substance: VITAMINS
  5. MTEOPROLOL [Concomitant]
     Active Substance: METOPROLOL
  6. PREMARIN [Concomitant]
     Active Substance: ESTROGENS, CONJUGATED
  7. ASP [Concomitant]
     Active Substance: ASPIRIN

REACTIONS (2)
  - Nasopharyngitis [None]
  - Fatigue [None]

NARRATIVE: CASE EVENT DATE: 20160201
